FAERS Safety Report 9283714 (Version 2)
Quarter: 2013Q2

REPORT INFORMATION
  Report Type: Spontaneous
  Country: GB (occurrence: GB)
  Receive Date: 20130510
  Receipt Date: 20130530
  Transmission Date: 20140414
  Serious: Yes (Other)
  Sender: FDA-Public Use
  Company Number: GB-GLAXOSMITHKLINE-B0773853A

PATIENT
  Sex: Female

DRUGS (1)
  1. SEROXAT [Suspect]
     Indication: OBSESSIVE-COMPULSIVE DISORDER
     Route: 065
     Dates: start: 2002

REACTIONS (6)
  - Drug dependence [Unknown]
  - Drug withdrawal syndrome [Unknown]
  - Nausea [Unknown]
  - Nervousness [Unknown]
  - Paraesthesia [Unknown]
  - Panic attack [Unknown]
